FAERS Safety Report 9759009 (Version 1)
Quarter: 2013Q4

REPORT INFORMATION
  Report Type: Spontaneous
  Country: US (occurrence: None)
  Receive Date: 20131213
  Receipt Date: 20131213
  Transmission Date: 20140711
  Serious: Yes (Other)
  Sender: FDA-Public Use
  Company Number: None

PATIENT
  Age: 56 Year
  Sex: Male
  Weight: 121.56 kg

DRUGS (1)
  1. CEFTAROLINE [Suspect]
     Indication: ARTHRITIS INFECTIVE
     Route: 042
     Dates: start: 20131107, end: 20131203

REACTIONS (5)
  - Neutropenia [None]
  - Fatigue [None]
  - Influenza like illness [None]
  - Aphthous stomatitis [None]
  - Leukopenia [None]
